FAERS Safety Report 8359403-5 (Version None)
Quarter: 2012Q2

REPORT INFORMATION
  Report Type: 
  Country: None (occurrence: None)
  Receive Date: 20120514
  Receipt Date: 20120514
  Transmission Date: 20120825
  Serious: Yes (Other)
  Sender: FDA-Public Use
  Company Number: None

PATIENT
  Age: 46 Year
  Sex: Female
  Weight: 108.8633 kg

DRUGS (2)
  1. CYMBALTA [Suspect]
     Indication: PAIN IN EXTREMITY
     Dosage: 60MF 1 DAILY PO
     Route: 048
     Dates: start: 20110101, end: 20120511
  2. CYMBALTA [Suspect]
     Indication: MUSCULOSKELETAL PAIN
     Dosage: 60MF 1 DAILY PO
     Route: 048
     Dates: start: 20110101, end: 20120511

REACTIONS (7)
  - HIDRADENITIS [None]
  - DRUG WITHDRAWAL SYNDROME [None]
  - ANAL PRURITUS [None]
  - VULVOVAGINAL PRURITUS [None]
  - PURULENCE [None]
  - FUNGAL INFECTION [None]
  - SKIN DISORDER [None]
